FAERS Safety Report 15533486 (Version 1)
Quarter: 2018Q4

REPORT INFORMATION
  Report Type: Spontaneous
  Country: FR (occurrence: FR)
  Receive Date: 20181019
  Receipt Date: 20181019
  Transmission Date: 20190205
  Serious: Yes (Hospitalization)
  Sender: FDA-Public Use
  Company Number: FR-009507513-1810FRA003915

PATIENT
  Age: 1 Year
  Sex: Female
  Weight: 8.4 kg

DRUGS (2)
  1. VENTOLINE (ALBUTEROL SULFATE) [Suspect]
     Active Substance: ALBUTEROL SULFATE
     Indication: ASTHMATIC CRISIS
     Dosage: 2.5 MG, QD
     Route: 055
     Dates: start: 20180831, end: 20180831
  2. CELESTENE [BETAMETHASONE] [Suspect]
     Active Substance: BETAMETHASONE
     Indication: ASTHMATIC CRISIS
     Dosage: 130 GTT, ONCE (IN TOTAL)
     Route: 048
     Dates: start: 20180831, end: 20180831

REACTIONS (1)
  - Supraventricular tachycardia [Recovered/Resolved]

NARRATIVE: CASE EVENT DATE: 20180831
